FAERS Safety Report 5003364-3 (Version None)
Quarter: 2006Q2

REPORT INFORMATION
  Report Type: 
  Country: None (occurrence: None)
  Receive Date: 20060511
  Receipt Date: 20060504
  Transmission Date: 20061013
  Serious: Yes (Other)
  Sender: FDA-Public Use
  Company Number: FRWYE601404MAY06

PATIENT
  Age: 33 Year
  Sex: Male

DRUGS (2)
  1. EFFEXOR [Suspect]
     Indication: DEPRESSION
     Dosage: 50 MG 1X PER 1 DAY
     Route: 048
     Dates: start: 20060428
  2. INSULIN [Concomitant]

REACTIONS (5)
  - BRADYPHRENIA [None]
  - CONDITION AGGRAVATED [None]
  - DIABETES MELLITUS [None]
  - FATIGUE [None]
  - NAUSEA [None]
